FAERS Safety Report 4986169-9 (Version None)
Quarter: 2006Q2

REPORT INFORMATION
  Report Type: 
  Country: None (occurrence: None)
  Receive Date: 20060424
  Receipt Date: 20060410
  Transmission Date: 20061013
  Serious: Yes (Other)
  Sender: FDA-Public Use
  Company Number: 2006-03-1743

PATIENT
  Age: 85 Year
  Sex: Female
  Weight: 49.8957 kg

DRUGS (4)
  1. PROVENTIL-HFA [Suspect]
     Indication: ASTHMA
     Dosage: ORAL AER INH
  2. PROVENTIL-HFA [Suspect]
  3. PROVENTIL-HFA [Suspect]
  4. PROVENTIL-HFA [Suspect]

REACTIONS (4)
  - CATARACT OPERATION [None]
  - DRUG INEFFECTIVE [None]
  - PHARMACEUTICAL PRODUCT COMPLAINT [None]
  - SPINAL FRACTURE [None]
